FAERS Safety Report 6375871-2 (Version None)
Quarter: 2009Q3

REPORT INFORMATION
  Report Type: 
  Country: None (occurrence: None)
  Receive Date: 20090921
  Receipt Date: 20090907
  Transmission Date: 20100115
  Serious: Yes (Hospitalization)
  Sender: FDA-Public Use
  Company Number: WAES 0909FRA00017

PATIENT
  Age: 64 Year
  Sex: Female

DRUGS (2)
  1. CAP VORINOSTAT [Suspect]
     Indication: MYELODYSPLASTIC SYNDROME
     Dosage: 400 MG/DAILY PO
     Route: 048
     Dates: start: 20090824, end: 20090906
  2. CYTARABINE [Suspect]
     Indication: MYELODYSPLASTIC SYNDROME
     Dosage: 10 MG/M[2]/DAILY SC
     Route: 058
     Dates: start: 20090810, end: 20090823

REACTIONS (1)
  - FEBRILE NEUTROPENIA [None]
